FAERS Safety Report 15366887 (Version 1)
Quarter: 2018Q3

REPORT INFORMATION
  Report Type: Spontaneous
  Country: FR (occurrence: FR)
  Receive Date: 20180910
  Receipt Date: 20180910
  Transmission Date: 20181010
  Serious: Yes (Other)
  Sender: FDA-Public Use
  Company Number: FR-MYLANLABS-2018M1065818

PATIENT

DRUGS (26)
  1. CISPLATIN. [Suspect]
     Active Substance: CISPLATIN
     Indication: NON-HODGKIN^S LYMPHOMA
     Dosage: 100 MG/M2, QD, DAY 1
     Route: 065
  2. ENDOXAN                            /00021101/ [Suspect]
     Active Substance: CYCLOPHOSPHAMIDE
     Indication: NON-HODGKIN^S LYMPHOMA
     Dosage: 4000 MG/M2, QD, CYCLE 2 AT DAY 1
     Route: 065
  3. VINCRISTINE [Suspect]
     Active Substance: VINCRISTINE
     Dosage: 2 MG, QD, DAY 1, CYCLE 4
     Route: 065
  4. VINCRISTINE [Suspect]
     Active Substance: VINCRISTINE
     Dosage: 2 MG, QD, DAY 1
     Route: 065
  5. DOXORUBICIN [Suspect]
     Active Substance: DOXORUBICIN
     Dosage: 75 MG/M2, QD, DAY 1, CYCLE 3
     Route: 065
  6. PREDNISONE. [Suspect]
     Active Substance: PREDNISONE
     Indication: PRODUCT USED FOR UNKNOWN INDICATION
     Dosage: UNK UNK, QD, DAY 1 TO DAY 4, CYCLE 4
     Route: 065
  7. UROMITEXAN [Suspect]
     Active Substance: MESNA
     Indication: NON-HODGKIN^S LYMPHOMA
     Dosage: UNK, MESNA WAS INFUSED BEFORE, AND 4 HOURS AND 8 H AFTER EACH CYCLOPHOSPHAMIDE INFUSION, WITH A TOTA
     Route: 065
  8. VINCRISTINE [Suspect]
     Active Substance: VINCRISTINE
     Dosage: 2 MG, QD, DAY 1, CYCLE 1
     Route: 065
  9. ETOPOSIDE. [Suspect]
     Active Substance: ETOPOSIDE
     Indication: NON-HODGKIN^S LYMPHOMA
     Dosage: 250 MG/M2, QD, DAY 1 AND DAY 2
     Route: 065
  10. DOXORUBICIN [Suspect]
     Active Substance: DOXORUBICIN
     Indication: NON-HODGKIN^S LYMPHOMA
     Dosage: 75 MG/M2, QD, DAY 1, CYCLE 1
     Route: 065
  11. VINCRISTINE [Suspect]
     Active Substance: VINCRISTINE
     Dosage: 2 MG, QD, DAY 1, CYCLE 2
     Route: 065
  12. CIPROFLOXACIN. [Concomitant]
     Active Substance: CIPROFLOXACIN
     Indication: PROPHYLAXIS
     Dosage: 1500 MG, QD
     Route: 048
  13. PREDNISONE. [Suspect]
     Active Substance: PREDNISONE
     Dosage: UNK UNK, QD, DAY 1 TO DAY 4, CYCLE 3
     Route: 065
  14. PREDNISONE. [Suspect]
     Active Substance: PREDNISONE
     Dosage: UNK UNK, QD, DAY 1 TO DAY 4, CYCLE 2
     Route: 065
  15. ENDOXAN                            /00021101/ [Suspect]
     Active Substance: CYCLOPHOSPHAMIDE
     Dosage: 6000 MG/M2, QD, HIGH DOSE CYCLE 1 AT DAY 1
     Route: 065
  16. FILGRASTIM [Concomitant]
     Active Substance: FILGRASTIM
     Indication: PRODUCT USED FOR UNKNOWN INDICATION
     Dosage: UNK, STARTED AT DAY 6 FOR MINIMUM OF 7 DAYS
     Route: 058
  17. METHOTREXATE. [Concomitant]
     Active Substance: METHOTREXATE
     Indication: PROPHYLAXIS
     Dosage: 12 MG/M2, CYCLE, PATIENT RECEIVED C1 AND C2 IN OUTPATIENT SETTING AND C3 AND C4 IN HOSPITAL. THE PAT
     Route: 037
  18. PREDNISONE. [Suspect]
     Active Substance: PREDNISONE
     Dosage: UNK, QD, DAY 1 TO DAY 4, CYCLE 1
     Route: 065
  19. ENDOXAN                            /00021101/ [Suspect]
     Active Substance: CYCLOPHOSPHAMIDE
     Dosage: 4000 MG/M2, QD, CYCLE 4 AT DAY 1
     Route: 065
  20. VINCRISTINE [Suspect]
     Active Substance: VINCRISTINE
     Indication: NON-HODGKIN^S LYMPHOMA
     Dosage: 2 MG, QD, DAY 1, CYCLE 3
     Route: 065
  21. DOXORUBICIN [Suspect]
     Active Substance: DOXORUBICIN
     Dosage: 75 MG/M2, QD, DAY 1, CYCLE 2
     Route: 065
  22. DOXORUBICIN [Suspect]
     Active Substance: DOXORUBICIN
     Dosage: 75 MG/M2, QD, DAY 1, CYCLE 4
     Route: 065
  23. PREDNISONE. [Suspect]
     Active Substance: PREDNISONE
     Dosage: UNK UNK, QD, DAY 1 TO DAY 4
     Route: 065
  24. ENDOXAN                            /00021101/ [Suspect]
     Active Substance: CYCLOPHOSPHAMIDE
     Dosage: 4000 MG/M2, QD, CYCLE 3 AT DAY 1
     Route: 065
  25. ENDOXAN                            /00021101/ [Suspect]
     Active Substance: CYCLOPHOSPHAMIDE
     Dosage: 500 MG/M2, QD, DAY 1
     Route: 065
  26. PENICILLIN G                       /00000901/ [Concomitant]
     Active Substance: PENICILLIN G
     Indication: PROPHYLAXIS
     Dosage: UNK UNK, QD, 1 * 10^6 TWICE DAILY
     Route: 048

REACTIONS (1)
  - Nephropathy toxic [Recovered/Resolved]
